FAERS Safety Report 9955639 (Version 1)
Quarter: 2014Q1

REPORT INFORMATION
  Report Type: Report from Study
  Country: US (occurrence: US)
  Receive Date: 20140304
  Receipt Date: 20140304
  Transmission Date: 20141002
  Serious: No
  Sender: FDA-Public Use
  Company Number: US-ABBVIE-13P-163-1090412-00

PATIENT
  Age: 36 Year
  Sex: Female

DRUGS (3)
  1. HUMIRA [Suspect]
     Indication: RHEUMATOID ARTHRITIS
     Route: 058
     Dates: start: 20130503, end: 20130503
  2. HUMIRA [Suspect]
     Indication: PSORIASIS
     Route: 058
     Dates: start: 20130510
  3. UNKNOWN CREAM [Concomitant]
     Indication: PSORIASIS
     Route: 061

REACTIONS (2)
  - Arthralgia [Not Recovered/Not Resolved]
  - Drug ineffective [Unknown]
